FAERS Safety Report 10722460 (Version 1)
Quarter: 2015Q1

REPORT INFORMATION
  Report Type: Spontaneous
  Country: US (occurrence: US)
  Receive Date: 20150119
  Receipt Date: 20150119
  Transmission Date: 20150721
  Serious: No
  Sender: FDA-Public Use
  Company Number: US-BAUSCH-BL-2014-010834

PATIENT
  Age: 81 Year
  Sex: Female

DRUGS (3)
  1. LOTEMAX [Suspect]
     Active Substance: LOTEPREDNOL ETABONATE
     Route: 047
  2. OPTIVE/REFRESH/SYSTANE [Concomitant]
     Indication: PRODUCT USED FOR UNKNOWN INDICATION
  3. RESTASIS [Concomitant]
     Active Substance: CYCLOSPORINE
     Indication: PRODUCT USED FOR UNKNOWN INDICATION

REACTIONS (2)
  - Contact lens intolerance [Not Recovered/Not Resolved]
  - Vision blurred [Not Recovered/Not Resolved]

NARRATIVE: CASE EVENT DATE: 2013
